FAERS Safety Report 16539680 (Version 14)
Quarter: 2021Q2

REPORT INFORMATION
  Report Type: Other
  Country: DE (occurrence: DE)
  Receive Date: 20190708
  Receipt Date: 20210524
  Transmission Date: 20210716
  Serious: Yes (Hospitalization)
  Sender: FDA-Public Use
  Company Number: DE-ROCHE-2346529

PATIENT
  Age: 37 Year
  Sex: Male
  Weight: 85 kg

DRUGS (4)
  1. OCRELIZUMAB. [Suspect]
     Active Substance: OCRELIZUMAB
     Route: 042
     Dates: start: 20190204
  2. ISONICOTINIC ACID HYDRAZIDE [Concomitant]
  3. OCRELIZUMAB. [Suspect]
     Active Substance: OCRELIZUMAB
     Route: 042
     Dates: start: 20190904
  4. OCRELIZUMAB. [Suspect]
     Active Substance: OCRELIZUMAB
     Indication: RELAPSING-REMITTING MULTIPLE SCLEROSIS
     Dosage: 04/FEB/2019, MOST RECENT DOSE
     Route: 042
     Dates: start: 20190121

REACTIONS (2)
  - Neuroborreliosis [Recovered/Resolved]
  - Meningitis [Recovered/Resolved]

NARRATIVE: CASE EVENT DATE: 20190613
